FAERS Safety Report 12220912 (Version 1)
Quarter: 2016Q1

REPORT INFORMATION
  Report Type: Spontaneous
  Country: US (occurrence: None)
  Receive Date: 20160329
  Receipt Date: 20160329
  Transmission Date: 20160526
  Serious: No
  Sender: FDA-Public Use
  Company Number: None

PATIENT
  Age: 87 Year
  Sex: Female

DRUGS (1)
  1. CAPECITABINE. [Suspect]
     Active Substance: CAPECITABINE
     Indication: BILE DUCT ADENOCARCINOMA
     Route: 048
     Dates: start: 20160310

REACTIONS (6)
  - Insomnia [None]
  - Rhinorrhoea [None]
  - Abdominal pain [None]
  - Constipation [None]
  - Nausea [None]
  - Drug intolerance [None]
